FAERS Safety Report 18541477 (Version 1)
Quarter: 2020Q4

REPORT INFORMATION
  Report Type: Report from Study
  Country: EG (occurrence: EG)
  Receive Date: 20201124
  Receipt Date: 20201124
  Transmission Date: 20210114
  Serious: Yes (Other)
  Sender: FDA-Public Use
  Company Number: EG-BAYER-2020-219742

PATIENT
  Age: 37 Year
  Sex: Female

DRUGS (10)
  1. OMEGA-3 NOS [Concomitant]
     Active Substance: OMEGA-3 FATTY ACIDS
     Indication: NUTRITIONAL SUPPLEMENTATION
     Dosage: UNK
     Dates: start: 202007
  2. BETAFERON [Suspect]
     Active Substance: INTERFERON BETA-1B
     Indication: MULTIPLE SCLEROSIS
     Dosage: 1 ML, QOD
     Route: 058
     Dates: start: 2017
  3. PANADOL [Concomitant]
     Active Substance: ACETAMINOPHEN
     Indication: ANALGESIC THERAPY
     Dosage: UNK
     Dates: start: 2017
  4. MILGA [Concomitant]
     Active Substance: BENFOTIAMINE\CYANOCOBALAMIN\PYRIDOXINE HYDROCHLORIDE
     Indication: NEURITIS
     Dosage: UNK
     Dates: start: 202007
  5. AMRIZOLE [METRONIDAZOLE] [Suspect]
     Active Substance: METRONIDAZOLE
     Dosage: UNK
     Dates: start: 20201022
  6. ZINCTRON [Concomitant]
     Dates: start: 202007
  7. RUTA C [Concomitant]
     Dates: start: 202007
  8. ONE ALPHA [Concomitant]
     Active Substance: ALFACALCIDOL
     Dosage: UNK
     Dates: start: 202007
  9. SELENIUM [Concomitant]
     Active Substance: SELENIUM
     Dates: start: 202007
  10. SULBUTIAMINE [Concomitant]
     Active Substance: SULBUTIAMINE
     Dates: start: 202007

REACTIONS (10)
  - Immunodeficiency [Not Recovered/Not Resolved]
  - Pyrexia [Recovering/Resolving]
  - Abdominal pain upper [Recovering/Resolving]
  - Pain in extremity [Recovered/Resolved]
  - Syncope [None]
  - Hypertension [Recovered/Resolved]
  - Hypoaesthesia [Recovering/Resolving]
  - Tachycardia [Recovered/Resolved]
  - Tooth abscess [Recovered/Resolved]
  - Product dose omission issue [None]

NARRATIVE: CASE EVENT DATE: 2017
